FAERS Safety Report 10214255 (Version 1)
Quarter: 2014Q2

REPORT INFORMATION
  Report Type: Spontaneous
  Country: US (occurrence: None)
  Receive Date: 20140602
  Receipt Date: 20140602
  Transmission Date: 20141212
  Serious: Yes (Hospitalization)
  Sender: FDA-Public Use
  Company Number: None

PATIENT
  Age: 83 Year
  Sex: Male
  Weight: 78 kg

DRUGS (19)
  1. IBUPROFEN [Suspect]
     Indication: RIB FRACTURE
  2. IBUPROFEN [Suspect]
     Indication: PAIN
  3. ASPIRIN EC 325 MG [Suspect]
     Indication: ARTERIOSCLEROSIS CORONARY ARTERY
     Route: 048
  4. ATENOLOL [Concomitant]
  5. BENAZEPRIL [Concomitant]
  6. DESONIDE [Concomitant]
  7. DIAZEPAM [Concomitant]
  8. FISH OIL [Concomitant]
  9. FLUTISONE [Concomitant]
  10. HCTZ [Concomitant]
  11. KETOCONAZOLE [Concomitant]
  12. MULTIVITAMIN [Concomitant]
  13. OMEPRAZOLE [Concomitant]
  14. SIMVASTATIN [Concomitant]
  15. TERBINAFINE [Concomitant]
  16. TRAMADOL [Concomitant]
  17. ASCROBIC ACID [Concomitant]
  18. LATANOPROST [Concomitant]
  19. ZINC [Concomitant]

REACTIONS (3)
  - Hypotension [None]
  - Anaemia [None]
  - Duodenal ulcer haemorrhage [None]
